FAERS Safety Report 5968966-6 (Version None)
Quarter: 2008Q4

REPORT INFORMATION
  Report Type: 
  Country: None (occurrence: None)
  Receive Date: 20081125
  Receipt Date: 20081125
  Transmission Date: 20090506
  Serious: Yes (Other)
  Sender: FDA-Public Use
  Company Number: None

PATIENT
  Sex: Female
  Weight: 83.4619 kg

DRUGS (5)
  1. SIMVASTATIN [Suspect]
     Indication: HYPERLIPIDAEMIA
     Dosage: 80MG ONE PO QD
     Route: 048
     Dates: start: 20081001
  2. ARIMIDEX [Concomitant]
  3. DIOVAN HCT [Concomitant]
  4. CITALOPRAM HYDROBROMIDE [Concomitant]
  5. MULTI-VITAMIN [Concomitant]

REACTIONS (2)
  - HEADACHE [None]
  - PAIN IN EXTREMITY [None]
